FAERS Safety Report 4744998-0 (Version None)
Quarter: 2005Q3

REPORT INFORMATION
  Report Type: 
  Country: None (occurrence: None)
  Receive Date: 20050811
  Receipt Date: 20050727
  Transmission Date: 20060218
  Serious: Yes (Other)
  Sender: FDA-Public Use
  Company Number: SUSI-2005-00586

PATIENT
  Age: 58 Year
  Sex: Female
  Weight: 98.4 kg

DRUGS (12)
  1. ADDERALL XR 10 [Suspect]
     Indication: ATTENTION DEFICIT/HYPERACTIVITY DISORDER
     Dosage: 20 MG, 1X/DAY:QD, ORAL; SEE IMAGE
     Route: 048
     Dates: start: 20050513, end: 20050608
  2. ADDERALL XR 10 [Suspect]
     Indication: ATTENTION DEFICIT/HYPERACTIVITY DISORDER
     Dosage: 20 MG, 1X/DAY:QD, ORAL; SEE IMAGE
     Route: 048
     Dates: start: 20050609
  3. ADVAIR DISKUS 100/50 [Concomitant]
  4. CYTOMEL [Concomitant]
  5. LEVOXYL [Concomitant]
  6. OXYCODONE/ACETAMINOPHEN (OXYCODONE HYDROCHLORIDE) [Concomitant]
  7. TRAZODONE (TRAZODONE) [Concomitant]
  8. XANAX [Concomitant]
  9. SINGULAIR (MONTELUKAST) [Concomitant]
  10. METFORMIN HCL [Concomitant]
  11. NEXIUM [Concomitant]
  12. PRAVACHOL [Concomitant]

REACTIONS (3)
  - CONDITION AGGRAVATED [None]
  - DEPRESSION [None]
  - SUICIDAL IDEATION [None]
